FAERS Safety Report 10376171 (Version 1)
Quarter: 2014Q3

REPORT INFORMATION
  Report Type: Spontaneous
  Country: US (occurrence: US)
  Receive Date: 20140811
  Receipt Date: 20140811
  Transmission Date: 20150326
  Serious: No
  Sender: FDA-Public Use
  Company Number: US-ASTRAZENECA-2013SE69714

PATIENT
  Age: 91 Year
  Sex: Female
  Weight: 63.5 kg

DRUGS (1)
  1. ARIMIDEX [Suspect]
     Active Substance: ANASTROZOLE
     Indication: BREAST CANCER
     Route: 048
     Dates: start: 201111, end: 2013

REACTIONS (6)
  - Activities of daily living impaired [Unknown]
  - Oxygen saturation abnormal [Unknown]
  - Cough [Unknown]
  - Dyspnoea [Recovering/Resolving]
  - Condition aggravated [Unknown]
  - Bronchitis [Unknown]

NARRATIVE: CASE EVENT DATE: 201203
